FAERS Safety Report 8047836-6 (Version None)
Quarter: 2012Q1

REPORT INFORMATION
  Report Type: 
  Country: None (occurrence: None)
  Receive Date: 20120116
  Receipt Date: 20120113
  Transmission Date: 20120608
  Serious: Yes (Death)
  Sender: FDA-Public Use
  Company Number: PHEH2012US001305

PATIENT
  Sex: Female

DRUGS (1)
  1. DIOVAN [Suspect]
     Dosage: 320 MG, QD
     Route: 048

REACTIONS (1)
  - GENERAL PHYSICAL CONDITION ABNORMAL [None]
